FAERS Safety Report 6977187-X (Version None)
Quarter: 2010Q3

REPORT INFORMATION
  Report Type: 
  Country: None (occurrence: None)
  Receive Date: 20100910
  Receipt Date: 20100831
  Transmission Date: 20110219
  Serious: Yes (Other)
  Sender: FDA-Public Use
  Company Number: US-PFIZER INC-2010110240

PATIENT
  Sex: Female

DRUGS (3)
  1. LYRICA [Suspect]
  2. NEURONTIN [Suspect]
  3. PREDNISONE [Suspect]

REACTIONS (2)
  - DRUG INEFFECTIVE [None]
  - GLUCOSE TOLERANCE IMPAIRED [None]
